FAERS Safety Report 10965291 (Version 3)
Quarter: 2015Q2

REPORT INFORMATION
  Report Type: Spontaneous
  Country: US (occurrence: US)
  Receive Date: 20150330
  Receipt Date: 20150409
  Transmission Date: 20150821
  Serious: No
  Sender: FDA-Public Use
  Company Number: US-PFIZER INC-2015105829

PATIENT
  Age: 65 Year
  Sex: Male
  Weight: 86 kg

DRUGS (7)
  1. LYRICA [Suspect]
     Active Substance: PREGABALIN
     Indication: NECK PAIN
  2. LYRICA [Suspect]
     Active Substance: PREGABALIN
     Indication: MUSCULOSKELETAL PAIN
  3. LYRICA [Suspect]
     Active Substance: PREGABALIN
     Indication: BACK PAIN
     Dosage: 50 MG, 3X/DAY
     Dates: start: 201503, end: 20150319
  4. METAXALONE. [Concomitant]
     Active Substance: METAXALONE
     Indication: MUSCLE RELAXANT THERAPY
     Dosage: 800 MG, 2X/DAY
     Route: 048
  5. LYRICA [Suspect]
     Active Substance: PREGABALIN
     Indication: PAIN
  6. LYRICA [Suspect]
     Active Substance: PREGABALIN
     Indication: FIBROMYALGIA
  7. EXCEDRIN EXTRA STRENGTH [Concomitant]
     Active Substance: ACETAMINOPHEN\ASPIRIN\CAFFEINE
     Indication: HEADACHE
     Dosage: UNK, AS NEEDED

REACTIONS (10)
  - Gingival swelling [Recovered/Resolved]
  - Dysgeusia [Unknown]
  - Lip swelling [Recovered/Resolved]
  - Paraesthesia oral [Recovered/Resolved]
  - Somnolence [Recovered/Resolved]
  - Gingival pain [Recovered/Resolved]
  - Dry mouth [Unknown]
  - Insomnia [Unknown]
  - Lip discolouration [Not Recovered/Not Resolved]
  - Burning sensation [Recovered/Resolved]

NARRATIVE: CASE EVENT DATE: 20150319
